FAERS Safety Report 8269253 (Version 3)
Quarter: 2013Q1

REPORT INFORMATION
  Report Type: Spontaneous
  Country: US (occurrence: US)
  Receive Date: 20111130
  Receipt Date: 20121218
  Transmission Date: 20140127
  Serious: Yes (Hospitalization, Disabling, Other)
  Sender: FDA-Public Use
  Company Number: PHEH2011US010264

PATIENT
  Age: 43 Year
  Sex: Female
  Weight: 92.7 kg

DRUGS (6)
  1. ZOMETA (ZOLEDRONATE) SOLUTION FOR INJECTION [Suspect]
     Indication: METASTASES TO BONE
     Dosage: 4 MG, EVERY THREE WEEKS
     Route: 042
     Dates: start: 2006, end: 20110809
  2. IBUPROFEN (IBUPROFEN) [Concomitant]
     Indication: PAIN IN JAW
     Dosage: 800 MG, DAILY PRN
     Route: 048
     Dates: start: 20110628
  3. MULTIVITAMINS (ASCORBIC ACID, ERGOCALCIFEROL, FOLIC ACID, NICOTINAMIDE, PANTHENOL, RETINOL, RIBOFLAVIN, THIAMINE HYDROCHLORIDE) [Concomitant]
     Route: 048
     Dates: start: 20100120
  4. IRON (IRON) [Concomitant]
     Indication: IRON DEFICIENCY
     Route: 048
     Dates: start: 20100120
  5. VICODIN (HYDROCODONE BITARTATE, PARACETAMOL [Concomitant]
     Indication: PAIN
     Dosage: 1 DF, UNK
     Route: 048
     Dates: start: 20111220
  6. HERCEPTIN (TRASTUZUMAB) [Concomitant]
     Indication: BREAST CANCER
     Dosage: 520 MG, TIW
     Route: 042
     Dates: start: 2005

REACTIONS (7)
  - Osteonecrosis of jaw [Not Recovered/Not Resolved]
  - Gingival infection [Not Recovered/Not Resolved]
  - Abscess jaw [Not Recovered/Not Resolved]
  - Pain in jaw [Not Recovered/Not Resolved]
  - Aphagia [Not Recovered/Not Resolved]
  - Gingival swelling [Not Recovered/Not Resolved]
  - Exposed bone in jaw [Not Recovered/Not Resolved]
